FAERS Safety Report 5981681-8 (Version None)
Quarter: 2008Q4

REPORT INFORMATION
  Report Type: 
  Country: None (occurrence: None)
  Receive Date: 20081205
  Receipt Date: 20081126
  Transmission Date: 20090506
  Serious: Yes (Other)
  Sender: FDA-Public Use
  Company Number: ES-BAXTER-2008BH013052

PATIENT
  Age: 38 Year
  Sex: Male
  Weight: 68 kg

DRUGS (5)
  1. HOLOXAN BAXTER [Suspect]
     Indication: HODGKIN'S DISEASE
     Route: 042
     Dates: start: 20080729, end: 20080801
  2. UROMITEXAN BAXTER [Suspect]
     Indication: HODGKIN'S DISEASE
     Route: 042
     Dates: start: 20080729, end: 20080801
  3. GEMZAR [Suspect]
     Indication: HODGKIN'S DISEASE
     Route: 042
     Dates: start: 20080801, end: 20080801
  4. GEMZAR [Concomitant]
     Route: 042
     Dates: start: 20080729, end: 20080729
  5. NAVELBINE [Concomitant]
     Dates: start: 20080729, end: 20080729

REACTIONS (6)
  - ANXIETY [None]
  - CATATONIA [None]
  - CONFUSIONAL STATE [None]
  - MUTISM [None]
  - NERVOUS SYSTEM DISORDER [None]
  - NIGHTMARE [None]
